FAERS Safety Report 9152619 (Version 1)
Quarter: 2013Q1

REPORT INFORMATION
  Report Type: Spontaneous
  Country: BR (occurrence: BR)
  Receive Date: 20130308
  Receipt Date: 20130308
  Transmission Date: 20140127
  Serious: Yes (Other)
  Sender: FDA-Public Use
  Company Number: BR-GLAXOSMITHKLINE-A1014870A

PATIENT
  Sex: Male

DRUGS (3)
  1. NIQUITIN 21MG [Suspect]
     Indication: SMOKING CESSATION THERAPY
     Route: 062
     Dates: start: 20130225, end: 20130225
  2. CARBAMAZEPINE [Concomitant]
  3. RISPERIDONE [Concomitant]

REACTIONS (5)
  - Anaphylactic reaction [Recovered/Resolved]
  - Pruritus [Unknown]
  - Cough [Unknown]
  - Erythema [Unknown]
  - Drug administration error [Unknown]
